FAERS Safety Report 7051223-7 (Version None)
Quarter: 2010Q4

REPORT INFORMATION
  Report Type: 
  Country: None (occurrence: None)
  Receive Date: 20101019
  Receipt Date: 20100920
  Transmission Date: 20110411
  Serious: Yes (Other)
  Sender: FDA-Public Use
  Company Number: FI-JNJCH-2010023456

PATIENT

DRUGS (1)
  1. VISCLEAR [Suspect]
     Indication: PRODUCT USED FOR UNKNOWN INDICATION
     Dosage: TEXT:0.5 MG/ML
     Route: 047

REACTIONS (2)
  - EYE INFECTION [None]
  - PRODUCT PACKAGING ISSUE [None]
